FAERS Safety Report 25010180 (Version 3)
Quarter: 2025Q1

REPORT INFORMATION
  Report Type: Spontaneous
  Country: FR (occurrence: FR)
  Receive Date: 20250225
  Receipt Date: 20250321
  Transmission Date: 20250409
  Serious: Yes (Hospitalization)
  Sender: PFIZER
  Company Number: None

PATIENT
  Age: 77 Year
  Sex: Female
  Weight: 56.7 kg

DRUGS (3)
  1. AZITHROMYCIN [Suspect]
     Active Substance: AZITHROMYCIN
     Indication: Influenza like illness
     Dosage: 500 MG, 1X/DAY
     Route: 048
     Dates: start: 20250103
  2. WARFARIN SODIUM [Suspect]
     Active Substance: WARFARIN SODIUM
     Indication: Coagulopathy
     Dosage: 4 MG, 1X/DAY (LONG COURSE, 5MG, THEN 4 MG
     Route: 048
     Dates: start: 19990101
  3. WARFARIN SODIUM [Suspect]
     Active Substance: WARFARIN SODIUM
     Dosage: 4 MG, 1X/DAY (LONG COURSE, 5MG, THEN 4 MG
     Route: 048
     Dates: end: 20250110

REACTIONS (3)
  - Muscle haemorrhage [Recovered/Resolved]
  - International normalised ratio increased [Recovered/Resolved]
  - Off label use [Unknown]

NARRATIVE: CASE EVENT DATE: 20250103
